FAERS Safety Report 18746416 (Version 2)
Quarter: 2021Q1

REPORT INFORMATION
  Report Type: Spontaneous
  Country: US (occurrence: US)
  Receive Date: 20210115
  Receipt Date: 20210122
  Transmission Date: 20210419
  Serious: Yes (Hospitalization, Other)
  Sender: FDA-Public Use
  Company Number: US-CATALYST PHARMACEUTICALS, INC-2021CAT00011

PATIENT
  Age: 75 Year
  Sex: Female

DRUGS (14)
  1. ACETYLCYSTEINE INHALER [Concomitant]
  2. METOPROLOL TARTRATE. [Concomitant]
     Active Substance: METOPROLOL TARTRATE
  3. MULTIVITAMIN LIQUID [Concomitant]
  4. FIRDAPSE [Suspect]
     Active Substance: AMIFAMPRIDINE PHOSPHATE
     Indication: MYASTHENIC SYNDROME
     Dosage: 10 MG, 2X/DAY
     Dates: start: 2020
  5. MIDODRINE [Concomitant]
     Active Substance: MIDODRINE
  6. IRON LIQUID [Concomitant]
  7. BUDESONIDE INHALER [Concomitant]
  8. ACETAMINOPHEN. [Concomitant]
     Active Substance: ACETAMINOPHEN
     Dosage: UNK, AS NEEDED
  9. NYSTATIN. [Concomitant]
     Active Substance: NYSTATIN
  10. IPRATROPIUM, ALBUTEROL INHALER [Concomitant]
  11. MELATONIN [Concomitant]
     Active Substance: MELATONIN
     Dosage: AT NIGHT
  12. CO (COENZYME) Q10 LIQUID [Concomitant]
  13. NYSTATIN. [Concomitant]
     Active Substance: NYSTATIN
     Dosage: APPLIED TO HER MOUTH
     Route: 061
  14. CALCIUM LIQUID [Concomitant]

REACTIONS (1)
  - Pneumonia staphylococcal [Recovered/Resolved with Sequelae]

NARRATIVE: CASE EVENT DATE: 202010
